FAERS Safety Report 7399670-8 (Version None)
Quarter: 2011Q2

REPORT INFORMATION
  Report Type: 
  Country: None (occurrence: None)
  Receive Date: 20110407
  Receipt Date: 20110324
  Transmission Date: 20111010
  Serious: Yes (Hospitalization)
  Sender: FDA-Public Use
  Company Number: US-BAYER-201034969NA

PATIENT
  Sex: Female

DRUGS (1)
  1. NEXAVAR [Suspect]
     Indication: RENAL CELL CARCINOMA
     Dosage: 200 MG, BID
     Route: 048
     Dates: start: 20100501

REACTIONS (7)
  - FATIGUE [None]
  - DRY SKIN [None]
  - GASTROINTESTINAL PAIN [None]
  - EXTRASYSTOLES [None]
  - PALPITATIONS [None]
  - ALOPECIA [None]
  - DIARRHOEA [None]
